FAERS Safety Report 5236938-5 (Version None)
Quarter: 2007Q1

REPORT INFORMATION
  Report Type: 
  Country: None (occurrence: None)
  Receive Date: 20070209
  Receipt Date: 20070129
  Transmission Date: 20070707
  Serious: Yes (Hospitalization)
  Sender: FDA-Public Use
  Company Number: 2006-02009

PATIENT
  Age: 76 Year
  Sex: Male

DRUGS (5)
  1. VELCADE [Suspect]
     Indication: MULTIPLE MYELOMA
     Dosage: 1.30 MG/M2, INTRAVENOUS
     Route: 042
     Dates: start: 20060728
  2. VICODIN [Concomitant]
  3. FENTANYL [Concomitant]
  4. ARANESP [Concomitant]
  5. CAPECITABINE (CAPECITABINE) [Concomitant]

REACTIONS (3)
  - ASTHENIA [None]
  - LIPASE INCREASED [None]
  - PYREXIA [None]
